FAERS Safety Report 8551714-3 (Version None)
Quarter: 2012Q3

REPORT INFORMATION
  Report Type: 
  Country: None (occurrence: None)
  Receive Date: 20120730
  Receipt Date: 20120725
  Transmission Date: 20120928
  Serious: Yes (Other)
  Sender: FDA-Public Use
  Company Number: US-PFIZER INC-2012180787

PATIENT
  Sex: Female
  Weight: 72.562 kg

DRUGS (4)
  1. LYRICA [Suspect]
     Dosage: 100 MG, 2X/DAY
     Dates: end: 20120724
  2. DILTIAZEM [Concomitant]
     Indication: CARDIAC DISORDER
     Dosage: 150 MG, 2X/DAY
  3. AVAPRO [Concomitant]
     Indication: HYPERTENSION
     Dosage: 175 MG, 1X/DAY
  4. LYRICA [Suspect]
     Indication: NEURALGIA
     Dosage: UNK
     Dates: start: 20050101

REACTIONS (5)
  - HEADACHE [None]
  - NEURALGIA [None]
  - ARTHROPATHY [None]
  - NERVOUSNESS [None]
  - ARTHRALGIA [None]
